FAERS Safety Report 6240604-7 (Version None)
Quarter: 2009Q2

REPORT INFORMATION
  Report Type: 
  Country: None (occurrence: None)
  Receive Date: 20090623
  Receipt Date: 20081028
  Transmission Date: 20091009
  Serious: No
  Sender: FDA-Public Use
  Company Number: US-ASTRAZENECA-2008UW24173

PATIENT
  Age: 60 Year
  Sex: Male
  Weight: 88.5 kg

DRUGS (5)
  1. PULMICORT FLEXHALER [Suspect]
     Indication: ASTHMA
     Dosage: 180 MCG, TWO PUFFS TWICE DAILY
     Route: 055
     Dates: start: 20081014
  2. PULMICORT FLEXHALER [Suspect]
     Indication: DYSPNOEA
     Dosage: 180 MCG, TWO PUFFS TWICE DAILY
     Route: 055
     Dates: start: 20081014
  3. ALBUTEROL [Suspect]
     Route: 065
  4. ASPIRIN [Concomitant]
  5. MULTI-VITAMINS [Concomitant]

REACTIONS (2)
  - DYSPHONIA [None]
  - TACHYCARDIA [None]
